FAERS Safety Report 6224251-9 (Version None)
Quarter: 2009Q2

REPORT INFORMATION
  Report Type: 
  Country: None (occurrence: None)
  Receive Date: 20090612
  Receipt Date: 20090311
  Transmission Date: 20091009
  Serious: No
  Sender: FDA-Public Use
  Company Number: US-ABBOTT-09P-163-0562484-00

PATIENT
  Sex: Male
  Weight: 65.83 kg

DRUGS (3)
  1. HUMIRA [Suspect]
     Indication: ANKYLOSING SPONDYLITIS
     Route: 058
     Dates: start: 20090310
  2. INDOMETHACIN [Concomitant]
     Indication: ANKYLOSING SPONDYLITIS
     Route: 048
  3. MULTI-VITAMIN [Concomitant]
     Indication: MEDICAL DIET
     Dosage: UNKNOWN
     Route: 048

REACTIONS (4)
  - DIZZINESS [None]
  - FATIGUE [None]
  - NAUSEA [None]
  - NERVOUSNESS [None]
